FAERS Safety Report 9151462 (Version 3)
Quarter: 2013Q4

REPORT INFORMATION
  Report Type: Spontaneous
  Country: US (occurrence: US)
  Receive Date: 20130308
  Receipt Date: 20131014
  Transmission Date: 20140711
  Serious: Yes (Life-Threatening, Hospitalization)
  Sender: FDA-Public Use
  Company Number: US-ASTELLAS-2012US012871

PATIENT
  Age: 77 Year
  Sex: Male

DRUGS (3)
  1. XTANDI [Suspect]
     Indication: PROSTATE CANCER
     Dosage: 160 MG, UID/QD
     Route: 048
     Dates: start: 20121029
  2. XTANDI [Suspect]
     Dosage: 120 MG, UID/QD
     Route: 048
     Dates: start: 20130610, end: 201307
  3. XTANDI [Suspect]
     Dosage: 120 MG, UID/QD
     Route: 048
     Dates: start: 20130809

REACTIONS (7)
  - Aneurysm [Unknown]
  - Epistaxis [Unknown]
  - Cystitis [Unknown]
  - Adverse event [Unknown]
  - Malaise [Unknown]
  - Decreased appetite [Unknown]
  - Anaemia [Unknown]
